FAERS Safety Report 9581819 (Version 11)
Quarter: 2017Q4

REPORT INFORMATION
  Report Type: Report from Study
  Country: ES (occurrence: ES)
  Receive Date: 20131002
  Receipt Date: 20171006
  Transmission Date: 20180321
  Serious: Yes (Hospitalization)
  Sender: FDA-Public Use
  Company Number: ES-ROCHE-1281478

PATIENT
  Age: 64 Year
  Sex: Female

DRUGS (43)
  1. ENALAPRIL [Concomitant]
     Active Substance: ENALAPRIL
     Route: 065
     Dates: start: 20141226
  2. FOSFOMYCIN [Concomitant]
     Active Substance: FOSFOMYCIN
     Route: 065
     Dates: start: 20141107, end: 20141130
  3. OMEPRAZOL [Concomitant]
     Active Substance: OMEPRAZOLE
     Route: 065
     Dates: start: 20150217, end: 20150306
  4. PERTUZUMAB. [Suspect]
     Active Substance: PERTUZUMAB
     Dosage: MAINTENANCE DOSE AS PER PROTOCOL, MOST RECENT DOSE PRIOR TO ATRIAL FIBRILLATION (FIRST EPISODE) ON 1
     Route: 042
     Dates: start: 20130823
  5. TRASTUZUMAB. [Suspect]
     Active Substance: TRASTUZUMAB
     Indication: HER-2 POSITIVE BREAST CANCER
     Dosage: LOADING DOSE AS PER PROTOCOL
     Route: 042
     Dates: start: 20130802, end: 20130802
  6. ADIRO [Concomitant]
     Active Substance: ASPIRIN
     Route: 065
     Dates: start: 2013
  7. DEXCLORFENIRAMINA [Concomitant]
     Route: 065
     Dates: start: 20130802
  8. LEVETIRACETAM. [Concomitant]
     Active Substance: LEVETIRACETAM
     Dosage: 1000 MG/12 HOUR
     Route: 065
     Dates: start: 2013
  9. TIRODRIL [Concomitant]
     Active Substance: METHIMAZOLE
     Route: 065
  10. TIAMAZOL [Concomitant]
     Route: 065
     Dates: start: 20161108, end: 20161213
  11. TIAMAZOL [Concomitant]
     Route: 065
     Dates: start: 20170614, end: 20170719
  12. TRASTUZUMAB. [Suspect]
     Active Substance: TRASTUZUMAB
     Route: 042
     Dates: start: 20170925
  13. LEVETIRACETAM. [Concomitant]
     Active Substance: LEVETIRACETAM
     Dosage: UNKNOWN
     Route: 065
  14. LEVOFLOXACIN. [Concomitant]
     Active Substance: LEVOFLOXACIN
     Route: 065
     Dates: start: 20131016, end: 20131023
  15. AUGMENTIN [Concomitant]
     Active Substance: AMOXICILLIN\CLAVULANATE POTASSIUM
     Route: 065
     Dates: start: 20131017, end: 20131024
  16. TIAMAZOL [Concomitant]
     Route: 065
     Dates: start: 20170112, end: 20170214
  17. TRASTUZUMAB. [Suspect]
     Active Substance: TRASTUZUMAB
     Dosage: DATE OF LAST DOSE PRIOR TO ATRIAL FIBRILATION (THIRD EPISODE): 01/SEP/2017?TEMPORARILY INTERRUPTED D
     Route: 042
     Dates: start: 20170901, end: 20170922
  18. CIPROFLOXACIN. [Concomitant]
     Active Substance: CIPROFLOXACIN
     Route: 065
     Dates: start: 20130918, end: 20130922
  19. ACETYLSALICYLIC ACID [Concomitant]
     Active Substance: ASPIRIN
     Route: 065
     Dates: start: 20141009
  20. TIAMAZOL [Concomitant]
     Route: 065
     Dates: start: 20160920, end: 20161108
  21. PERTUZUMAB. [Suspect]
     Active Substance: PERTUZUMAB
     Indication: HER-2 POSITIVE BREAST CANCER
     Dosage: LOADING DOSE AS PER PROTOCOL
     Route: 042
     Dates: start: 20130802, end: 20130802
  22. PERTUZUMAB. [Suspect]
     Active Substance: PERTUZUMAB
     Route: 042
     Dates: start: 20170925
  23. HYDROCHLOROTHIAZIDE. [Concomitant]
     Active Substance: HYDROCHLOROTHIAZIDE
     Route: 065
     Dates: start: 2013, end: 20141008
  24. RANITIDINE. [Concomitant]
     Active Substance: RANITIDINE
     Indication: PREMEDICATION
     Route: 065
     Dates: start: 20130802
  25. LEVETIRACETAM. [Concomitant]
     Active Substance: LEVETIRACETAM
     Route: 065
     Dates: start: 20141226
  26. BUSCAPINE [Concomitant]
     Active Substance: BUTYLSCOPOLAMINE
     Route: 065
     Dates: start: 20130918, end: 20130923
  27. BISOPROLOL HEMIFUMARATE [Concomitant]
     Active Substance: BISOPROLOL FUMARATE
     Route: 065
     Dates: start: 20160908
  28. AMOXICILLIN. [Concomitant]
     Active Substance: AMOXICILLIN
     Dosage: UNKNOWN
     Route: 065
     Dates: start: 20161108
  29. PERTUZUMAB. [Suspect]
     Active Substance: PERTUZUMAB
     Dosage: MOST RECENT DOSE PRIOR TO ATRIAL FIBRILLATION (THIRD EPISODE): 01/SEP/2017?TEMPORARILY INTERRUPTED D
     Route: 042
     Dates: start: 20170901, end: 20170922
  30. DOCETAXEL. [Suspect]
     Active Substance: DOCETAXEL
     Indication: HER-2 POSITIVE BREAST CANCER
     Dosage: MOST RECENT DOSE PRIOR TO FIRST EPISODE OF ATRIAL FIBRILLATION ON 13/SEP/2013
     Route: 042
     Dates: start: 20130802
  31. DEXAMETHASONE. [Concomitant]
     Active Substance: DEXAMETHASONE
     Route: 065
     Dates: start: 20130802
  32. MONUROL [Concomitant]
     Active Substance: FOSFOMYCIN TROMETHAMINE
     Dosage: 1/3 G DAILY
     Route: 065
     Dates: start: 20141207, end: 20141209
  33. HIDROFEROL [Concomitant]
     Active Substance: CALCIFEDIOL
     Route: 065
     Dates: start: 20150424
  34. RINO EBASTEL [Concomitant]
     Dosage: UNKNOWN
     Route: 065
     Dates: start: 20161017, end: 20161021
  35. TIAMAZOL [Concomitant]
     Route: 065
     Dates: start: 20160810, end: 20160920
  36. TIAMAZOL [Concomitant]
     Route: 065
     Dates: start: 20161213, end: 20170112
  37. TIAMAZOL [Concomitant]
     Route: 065
     Dates: start: 20170719
  38. TRANGOREX [Concomitant]
     Active Substance: AMIODARONE HYDROCHLORIDE
     Route: 065
     Dates: start: 20150313, end: 20160908
  39. ACETYLSALICYLIC ACID [Concomitant]
     Active Substance: ASPIRIN
     Indication: THROMBOSIS
     Route: 065
     Dates: start: 2013, end: 20131003
  40. LEVOFLOXACIN. [Concomitant]
     Active Substance: LEVOFLOXACIN
     Route: 065
     Dates: start: 20141128, end: 20141219
  41. TIAMAZOL [Concomitant]
     Route: 065
     Dates: start: 20170214, end: 20170614
  42. TRASTUZUMAB. [Suspect]
     Active Substance: TRASTUZUMAB
     Dosage: MAINTENANCE DOSE  AS PER PROTOCOL?MOST RECENT DOSE PRIOR TO FIRST EPISODE OF ATRIAL FIBRILLATION ON
     Route: 042
     Dates: start: 20130823
  43. ENALAPRIL [Concomitant]
     Active Substance: ENALAPRIL
     Route: 065
     Dates: start: 2013

REACTIONS (1)
  - Atrial fibrillation [Recovered/Resolved]

NARRATIVE: CASE EVENT DATE: 20130923
